FAERS Safety Report 5402037-2 (Version None)
Quarter: 2007Q3

REPORT INFORMATION
  Report Type: 
  Country: None (occurrence: None)
  Receive Date: 20070727
  Receipt Date: 20070712
  Transmission Date: 20080115
  Serious: Yes (Hospitalization)
  Sender: FDA-Public Use
  Company Number: 2007S1006458

PATIENT
  Age: 35 Year
  Sex: Female

DRUGS (7)
  1. PHENYTOIN SODIUM [Suspect]
     Indication: EPILEPSY
     Dosage: 275 MG; TWICE A DAY; ORAL; 225 MG; TWICE A DAY; ORAL; 225 MG; 3 TIME A DAY; ORAL
     Route: 048
  2. VALPROATE SODIUM (CON.) [Concomitant]
  3. CEFTAZIDIME (CON.) [Concomitant]
  4. FUROSEMIDE (CON.) [Concomitant]
  5. FLUCONAZOLE (CON.) [Concomitant]
  6. PANTOPRAZOLE (CON.) [Concomitant]
  7. NADROPARIN (CON.) [Concomitant]

REACTIONS (22)
  - ANTICONVULSANT DRUG LEVEL BELOW THERAPEUTIC [None]
  - BLOOD ALBUMIN DECREASED [None]
  - DEVICE FAILURE [None]
  - DEVICE OCCLUSION [None]
  - DISORIENTATION [None]
  - ELECTROLYTE IMBALANCE [None]
  - HALLUCINATION [None]
  - HEPATIC FAILURE [None]
  - HYPOGLYCAEMIA [None]
  - HYPOXIA [None]
  - INCOHERENT [None]
  - ISCHAEMIA [None]
  - MEMORY IMPAIRMENT [None]
  - MYOCLONUS [None]
  - PSEUDOMONAS INFECTION [None]
  - RENAL FAILURE [None]
  - RESPIRATORY FAILURE [None]
  - SOMNOLENCE [None]
  - STATUS EPILEPTICUS [None]
  - THERAPEUTIC AGENT TOXICITY [None]
  - TREMOR [None]
  - UROSEPSIS [None]
